FAERS Safety Report 8013837-7 (Version None)
Quarter: 2011Q4

REPORT INFORMATION
  Report Type: 
  Country: None (occurrence: None)
  Receive Date: 20111223
  Receipt Date: 20111219
  Transmission Date: 20120403
  Serious: Yes (Death)
  Sender: FDA-Public Use
  Company Number: 1000026373

PATIENT
  Age: 50 Year
  Sex: Male

DRUGS (9)
  1. CITALOPRAM HYDROBROMIDE [Suspect]
     Route: 058
  2. TEMAZEPAM [Suspect]
  3. OXAZEPAM [Suspect]
  4. OXYCODONE HCL [Suspect]
  5. ETHANOL (ETHANOL) [Suspect]
  6. NORTRIPTYLINE HCL [Suspect]
  7. ENBREL [Suspect]
     Dosage: 14.2857 MG (50 MG, 2 IN 1 WK), SUBCUTANEOUS
     Route: 058
  8. AMITRIPTYLINE HCL [Suspect]
  9. ALPRAZOLAM [Suspect]

REACTIONS (1)
  - TOXICITY TO VARIOUS AGENTS [None]
